FAERS Safety Report 15500746 (Version 1)
Quarter: 2018Q4

REPORT INFORMATION
  Report Type: Spontaneous
  Country: US (occurrence: US)
  Receive Date: 20181015
  Receipt Date: 20181015
  Transmission Date: 20190205
  Serious: No
  Sender: FDA-Public Use
  Company Number: US-MYLANLABS-2018M1070593

PATIENT
  Sex: Female

DRUGS (1)
  1. DESVENLAFAXINE EXTENDED-RELEASE TABLETS [Suspect]
     Active Substance: DESVENLAFAXINE SUCCINATE
     Indication: PRODUCT USED FOR UNKNOWN INDICATION
     Dosage: UNK
     Route: 065

REACTIONS (8)
  - Mood swings [Unknown]
  - Anger [Unknown]
  - Constipation [Unknown]
  - Drug ineffective [Unknown]
  - Depression [Unknown]
  - Abdominal pain upper [Unknown]
  - Fluid retention [Unknown]
  - Headache [Unknown]
